FAERS Safety Report 6643916-8 (Version None)
Quarter: 2010Q1

REPORT INFORMATION
  Report Type: 
  Country: None (occurrence: None)
  Receive Date: 20100322
  Receipt Date: 20100315
  Transmission Date: 20100710
  Serious: Yes (Death)
  Sender: FDA-Public Use
  Company Number: TR-ELI_LILLY_AND_COMPANY-TR201003004302

PATIENT
  Age: 86 Year
  Sex: Female

DRUGS (4)
  1. HUMULIN N [Suspect]
     Indication: DIABETES MELLITUS
     Dosage: 6 IU, EACH MORNING
     Route: 058
     Dates: start: 20070101
  2. HUMULIN N [Suspect]
     Dosage: 4 IU, EACH EVENING
     Route: 058
     Dates: start: 20070101
  3. ANTIHYPERTENSIVES [Concomitant]
     Indication: HYPERTENSION
     Dosage: UNK, UNK
  4. ANTI-ASTHMATICS [Concomitant]
     Indication: ASTHMA
     Dosage: UNK, UNK

REACTIONS (1)
  - DEATH [None]
